FAERS Safety Report 5075811-2 (Version None)
Quarter: 2006Q3

REPORT INFORMATION
  Report Type: 
  Country: None (occurrence: None)
  Receive Date: 20060809
  Receipt Date: 20060731
  Transmission Date: 20061208
  Serious: Yes (Hospitalization)
  Sender: FDA-Public Use
  Company Number: FR-GLAXOSMITHKLINE-B0432598A

PATIENT
  Age: 82 Year
  Sex: Male
  Weight: 76 kg

DRUGS (5)
  1. AUGMENTIN '125' [Suspect]
     Dosage: 3G PER DAY
     Route: 042
     Dates: start: 20060217, end: 20060219
  2. ACETAMINOPHEN [Concomitant]
     Dosage: 3G PER DAY
     Route: 042
     Dates: start: 20060217
  3. BRICANYL [Concomitant]
     Dosage: 4PUFF PER DAY
     Route: 055
  4. DEBRIDAT [Concomitant]
     Dosage: 3UNIT PER DAY
     Route: 042
  5. PRIMPERAN TAB [Concomitant]
     Dosage: 3UNIT PER DAY
     Route: 042

REACTIONS (5)
  - ATRIAL FLUTTER [None]
  - C-REACTIVE PROTEIN INCREASED [None]
  - CARDIAC FAILURE [None]
  - LEUKOCYTOCLASTIC VASCULITIS [None]
  - SKIN NECROSIS [None]
